FAERS Safety Report 14217219 (Version 4)
Quarter: 2018Q1

REPORT INFORMATION
  Report Type: Spontaneous
  Country: US (occurrence: US)
  Receive Date: 20171123
  Receipt Date: 20180124
  Transmission Date: 20180508
  Serious: Yes (Hospitalization, Other)
  Sender: FDA-Public Use
  Company Number: US-AMGEN-USASP2017173954

PATIENT
  Age: 39 Year
  Sex: Female

DRUGS (4)
  1. IMLYGIC [Suspect]
     Active Substance: TALIMOGENE LAHERPAREPVEC
     Dosage: 4 ML, UNK (4 ML OF 108 VIAL)
     Route: 026
     Dates: start: 20171116
  2. OPDIVO [Concomitant]
     Active Substance: NIVOLUMAB
     Indication: METASTATIC MALIGNANT MELANOMA
     Dosage: UNK
  3. IMLYGIC [Suspect]
     Active Substance: TALIMOGENE LAHERPAREPVEC
     Indication: METASTATIC MALIGNANT MELANOMA
     Dosage: UNK (106)
     Route: 026
     Dates: start: 20171019
  4. YERVOY [Concomitant]
     Active Substance: IPILIMUMAB
     Indication: METASTATIC MALIGNANT MELANOMA
     Dosage: UNK

REACTIONS (11)
  - Headache [Unknown]
  - Tachycardia [Unknown]
  - Seizure [Unknown]
  - Pyrexia [Unknown]
  - Blood creatinine increased [Unknown]
  - Dehydration [Recovered/Resolved]
  - Hypotension [Unknown]
  - Fatigue [Unknown]
  - Urine analysis abnormal [Unknown]
  - Drug administration error [Unknown]
  - Mental status changes [Recovering/Resolving]

NARRATIVE: CASE EVENT DATE: 20171030
